FAERS Safety Report 5376338-0 (Version None)
Quarter: 2007Q3

REPORT INFORMATION
  Report Type: 
  Country: None (occurrence: None)
  Receive Date: 20070702
  Receipt Date: 20070621
  Transmission Date: 20080115
  Serious: Yes (Other)
  Sender: FDA-Public Use
  Company Number: US-PFIZER INC-2007017664

PATIENT
  Sex: Male
  Weight: 84.8 kg

DRUGS (6)
  1. NORVASC [Suspect]
     Indication: HYPERTENSION
  2. LYRICA [Suspect]
     Dates: start: 20070301, end: 20070301
  3. DIOVAN [Concomitant]
     Dosage: DAILY DOSE:80MG
  4. ACIPHEX [Concomitant]
  5. CRESTOR [Concomitant]
  6. POTASSIUM ACETATE [Concomitant]

REACTIONS (5)
  - FEELING ABNORMAL [None]
  - HEART RATE IRREGULAR [None]
  - PROSTATE CANCER [None]
  - SOMNOLENCE [None]
  - TINNITUS [None]
